FAERS Safety Report 19401431 (Version 1)
Quarter: 2021Q2

REPORT INFORMATION
  Report Type: Spontaneous
  Country: BR (occurrence: BR)
  Receive Date: 20210611
  Receipt Date: 20210611
  Transmission Date: 20210717
  Serious: Yes (Other)
  Sender: FDA-Public Use
  Company Number: BR-ABBVIE-21P-020-3942169-00

PATIENT
  Sex: Male
  Weight: 115 kg

DRUGS (4)
  1. CLONAZEPAM. [Concomitant]
     Active Substance: CLONAZEPAM
     Indication: ANXIETY
     Dosage: DD: 6 DROPS; AT NIGHT, TO SLEEP
     Route: 048
     Dates: start: 2020
  2. ATENOLOL. [Concomitant]
     Active Substance: ATENOLOL
     Indication: BLOOD PRESSURE MANAGEMENT
     Dosage: DD: 50MG; IN THE MORNING, AT NIGHT
     Route: 048
  3. OFLOXACIN. [Interacting]
     Active Substance: OFLOXACIN
     Indication: URINARY TRACT INFECTION
     Dosage: DRUG NAME REPORTED AS OFLOXACIN FAMILY DRUG; AT 9PM
     Route: 048
     Dates: start: 2006
  4. DEPAKENE [Suspect]
     Active Substance: VALPROIC ACID
     Indication: PETIT MAL EPILEPSY
     Dosage: DD: 1000MG; IN THE MORNING, AT NIGHT
     Route: 048

REACTIONS (10)
  - Musculoskeletal stiffness [Unknown]
  - Cardiac arrest [Unknown]
  - Dyspnoea [Unknown]
  - Bruxism [Unknown]
  - Product use in unapproved indication [Unknown]
  - Off label use [Unknown]
  - Erysipelas [Unknown]
  - Paralysis [Unknown]
  - Urinary tract infection [Unknown]
  - Drug interaction [Unknown]
